FAERS Safety Report 5970837-6 (Version None)
Quarter: 2008Q4

REPORT INFORMATION
  Report Type: 
  Country: None (occurrence: None)
  Receive Date: 20081127
  Receipt Date: 20081117
  Transmission Date: 20090506
  Serious: No
  Sender: FDA-Public Use
  Company Number: US-JNJFOC-20081104333

PATIENT
  Sex: Female
  Weight: 63.5 kg

DRUGS (4)
  1. UNSPECIFIED TRANSDERMAL SYSTEM [Suspect]
     Route: 062
  2. UNSPECIFIED TRANSDERMAL SYSTEM [Suspect]
     Route: 062
  3. UNSPECIFIED TRANSDERMAL SYSTEM [Suspect]
     Indication: ARTHRALGIA
     Route: 062
  4. FENTANYL TRANSDERMAL SYSTEM [Suspect]
     Indication: ARTHRALGIA
     Route: 062

REACTIONS (8)
  - APPLICATION SITE VESICLES [None]
  - DRUG DOSE OMISSION [None]
  - DRUG EFFECT INCREASED [None]
  - HYPERSOMNIA [None]
  - MALAISE [None]
  - PAIN [None]
  - RASH [None]
  - RASH PAPULAR [None]
